FAERS Safety Report 9226412 (Version 1)
Quarter: 2013Q2

REPORT INFORMATION
  Report Type: Spontaneous
  Country: ES (occurrence: ES)
  Receive Date: 20130411
  Receipt Date: 20130411
  Transmission Date: 20140414
  Serious: Yes (Other)
  Sender: FDA-Public Use
  Company Number: ES-UCBSA-066269

PATIENT
  Age: 29 Year
  Sex: Female

DRUGS (4)
  1. VIMPAT [Suspect]
     Indication: EPILEPSY
     Dosage: STARTED WITH LOW DOSE AND INCREASED UNTIL 400 MG
     Dates: start: 201203
  2. KEPPRA [Concomitant]
     Indication: EPILEPSY
  3. ZONEGRAN [Concomitant]
     Indication: EPILEPSY
  4. RIVOTRIL [Concomitant]
     Indication: EPILEPSY

REACTIONS (2)
  - Premature delivery [Unknown]
  - Pregnancy [Recovered/Resolved]
